FAERS Safety Report 4631227-1 (Version None)
Quarter: 2005Q2

REPORT INFORMATION
  Report Type: 
  Country: None (occurrence: None)
  Receive Date: 20050406
  Receipt Date: 20050329
  Transmission Date: 20051028
  Serious: Yes (Hospitalization)
  Sender: FDA-Public Use
  Company Number: HQWYE547830MAR05

PATIENT
  Age: 63 Year
  Sex: Male
  Weight: 84.22 kg

DRUGS (3)
  1. RAPAMUNE [Suspect]
     Indication: PROPHYLAXIS AGAINST TRANSPLANT REJECTION
     Dosage: 4 MG 1X PER 1 DAY, ORAL
     Route: 048
     Dates: start: 20040926
  2. CORTICOSTEROIDS (CORTICOSTEROIDS, ) [Suspect]
     Dosage: ORAL
     Route: 048
  3. MYCOPHENOLATE MOFETIL (MYCOPHENOLATE MOFETIL) [Suspect]
     Dosage: ORAL
     Route: 048

REACTIONS (1)
  - DEEP VEIN THROMBOSIS [None]
